FAERS Safety Report 23936690 (Version 2)
Quarter: 2024Q3

REPORT INFORMATION
  Report Type: Spontaneous
  Country: IT (occurrence: IT)
  Receive Date: 20240604
  Receipt Date: 20240820
  Transmission Date: 20241016
  Serious: Yes (Other)
  Sender: ROCHE
  Company Number: None

PATIENT
  Age: 81 Year
  Sex: Male

DRUGS (8)
  1. CAPECITABINE [Suspect]
     Active Substance: CAPECITABINE
     Indication: Colorectal adenocarcinoma
     Route: 048
     Dates: start: 20240404, end: 20240417
  2. BEVACIZUMAB [Suspect]
     Active Substance: BEVACIZUMAB
     Indication: Colorectal adenocarcinoma
     Route: 065
     Dates: start: 20240403, end: 20240403
  3. CARVEDILOL [Concomitant]
     Active Substance: CARVEDILOL
  4. ASPIRIN [Concomitant]
     Active Substance: ASPIRIN
  5. LEVETIRACETAM [Concomitant]
     Active Substance: LEVETIRACETAM
  6. ESOMEPRAZOLE [Concomitant]
     Active Substance: ESOMEPRAZOLE
  7. OMEGA-3-ACID ETHYL ESTERS [Concomitant]
     Active Substance: OMEGA-3-ACID ETHYL ESTERS
  8. ROCALTROL [Concomitant]
     Active Substance: CALCITRIOL

REACTIONS (3)
  - Gamma-glutamyltransferase increased [Unknown]
  - Blood creatinine increased [Unknown]
  - Azotaemia [Unknown]

NARRATIVE: CASE EVENT DATE: 20240422
